FAERS Safety Report 25244975 (Version 1)
Quarter: 2025Q2

REPORT INFORMATION
  Report Type: Spontaneous
  Country: US (occurrence: None)
  Receive Date: 20250425
  Receipt Date: 20250425
  Transmission Date: 20250716
  Serious: Yes (Life-Threatening, Hospitalization, Disabling)
  Sender: FDA-CTU
  Company Number: None

PATIENT
  Age: 56 Year
  Sex: Male
  Weight: 69.75 kg

DRUGS (1)
  1. FINASTERIDE [Suspect]
     Active Substance: FINASTERIDE
     Indication: Androgenetic alopecia
     Dosage: DAILY?
     Dates: start: 20210422, end: 20230322

REACTIONS (4)
  - Depression [None]
  - Anxiety [None]
  - Insomnia [None]
  - Suicidal ideation [None]

NARRATIVE: CASE EVENT DATE: 20230322
